FAERS Safety Report 6147306-6 (Version None)
Quarter: 2009Q2

REPORT INFORMATION
  Report Type: 
  Country: None (occurrence: None)
  Receive Date: 20090408
  Receipt Date: 20090326
  Transmission Date: 20091009
  Serious: Yes (Death, Hospitalization, Disabling)
  Sender: FDA-Public Use
  Company Number: DE-ELI_LILLY_AND_COMPANY-DE200902002200

PATIENT

DRUGS (5)
  1. GEMCITABINE HCL [Suspect]
     Indication: LYMPHOMA
     Dosage: UNK, UNK
     Dates: start: 20051125, end: 20060302
  2. OXALIPLATIN [Suspect]
     Indication: LYMPHOMA
     Dosage: UNK, UNK
     Dates: start: 20051125, end: 20060302
  3. RITUXIMAB [Concomitant]
     Dates: start: 20060101, end: 20060401
  4. TAVOR [Concomitant]
     Dosage: 2.5 MG, 3/D
  5. ALLOPURINOL [Concomitant]
     Dosage: 300 D/F, DAILY (1/D)

REACTIONS (3)
  - HEPATIC CIRRHOSIS [None]
  - HEPATITIS CHRONIC ACTIVE [None]
  - HOSPITALISATION [None]
